FAERS Safety Report 7934158-4 (Version None)
Quarter: 2011Q4

REPORT INFORMATION
  Report Type: 
  Country: None (occurrence: None)
  Receive Date: 20111118
  Receipt Date: 20111110
  Transmission Date: 20120403
  Serious: Yes (Hospitalization)
  Sender: FDA-Public Use
  Company Number: 2011SP047390

PATIENT
  Age: 27 Year
  Sex: Female

DRUGS (1)
  1. IMPLANON [Suspect]
     Indication: CONTRACEPTION
     Dates: start: 20100101

REACTIONS (4)
  - METASTASES TO LUNG [None]
  - METASTASES TO BONE [None]
  - BREAST CANCER METASTATIC [None]
  - METASTASES TO LIVER [None]
